FAERS Safety Report 23485695 (Version 1)
Quarter: 2024Q1

REPORT INFORMATION
  Report Type: Spontaneous
  Country: MX (occurrence: MX)
  Receive Date: 20240206
  Receipt Date: 20240206
  Transmission Date: 20240409
  Serious: Yes (Other)
  Sender: FDA-Public Use
  Company Number: MX-AMGEN-MEXSP2024021630

PATIENT

DRUGS (2)
  1. FILGRASTIM [Suspect]
     Active Substance: FILGRASTIM
     Indication: Liposarcoma
     Dosage: 300 MICROGRAM DAY 2-5
     Route: 065
  2. PACLITAXEL [Concomitant]
     Active Substance: PACLITAXEL
     Dosage: 175 MILLIGRAM/SQ. METER, Q2WK, DAY 1 (UP TO 10 CYCLES), MEDIAN NUMBER OF PACLITAXEL CYCLES WAS 6.3 (
     Route: 065

REACTIONS (2)
  - Neuropathy peripheral [Unknown]
  - Liposarcoma [Unknown]
